FAERS Safety Report 6729934-X (Version None)
Quarter: 2010Q2

REPORT INFORMATION
  Report Type: 
  Country: None (occurrence: None)
  Receive Date: 20100518
  Receipt Date: 20100506
  Transmission Date: 20101027
  Serious: Yes (Hospitalization, Other)
  Sender: FDA-Public Use
  Company Number: US-PFIZER INC-2010058114

PATIENT
  Sex: Female
  Weight: 69.388 kg

DRUGS (1)
  1. DILANTIN-125 [Suspect]
     Indication: EPILEPSY
     Dosage: 100 MG, 1X/DAY

REACTIONS (10)
  - BURNING SENSATION [None]
  - CHEST PAIN [None]
  - CONVULSION [None]
  - DIZZINESS [None]
  - GAIT DISTURBANCE [None]
  - INSOMNIA [None]
  - PAIN [None]
  - PAIN IN EXTREMITY [None]
  - PHARYNGITIS [None]
  - VISION BLURRED [None]
